FAERS Safety Report 23789924 (Version 1)
Quarter: 2024Q2

REPORT INFORMATION
  Report Type: Spontaneous
  Country: LU (occurrence: LU)
  Receive Date: 20240426
  Receipt Date: 20240426
  Transmission Date: 20240716
  Serious: Yes (Life-Threatening, Hospitalization)
  Sender: FDA-Public Use
  Company Number: None

PATIENT
  Age: 74 Year
  Sex: Male
  Weight: 93 kg

DRUGS (5)
  1. OXALIPLATIN [Suspect]
     Active Substance: OXALIPLATIN
     Indication: Colon cancer
     Dosage: TIME INTERVAL: CYCLICAL: Q2W?3RD COURSE OF CHEMOTHERAPY?85 MG/M?,OXALIPLATINE TEVA
     Route: 042
     Dates: start: 20240326, end: 20240326
  2. DEXAMETHASONE [Concomitant]
     Active Substance: DEXAMETHASONE
     Indication: Chemotherapy side effect prophylaxis
     Dosage: TIME INTERVAL: TOTAL: Q2W?3RD COURSE OF CHEMOTHERAPY
     Route: 042
     Dates: start: 20240326, end: 20240326
  3. ONDANSETRON [Concomitant]
     Active Substance: ONDANSETRON
     Indication: Chemotherapy side effect prophylaxis
     Dosage: TIME INTERVAL: TOTAL: Q2W?3RD COURSE OF CHEMOTHERAPY
     Route: 042
     Dates: start: 20240326, end: 20240326
  4. FLUOROURACIL [Suspect]
     Active Substance: FLUOROURACIL
     Indication: Colon cancer
     Dosage: TIME INTERVAL: CYCLICAL: Q2W?3RD COURSE OF CHEMOTHERAPY?46H PUMP OF 2400 MG/M? SCHEDULED BUT STOP...
     Route: 042
     Dates: start: 20240326, end: 20240326
  5. FLUOROURACIL [Suspect]
     Active Substance: FLUOROURACIL
     Indication: Colon cancer
     Dosage: TIME INTERVAL: CYCLICAL: Q2W?3RD COURSE OF CHEMOTHERAPY?400 MG/M? BOLUS
     Route: 042
     Dates: start: 20240326, end: 20240326

REACTIONS (2)
  - Respiratory distress [Recovered/Resolved]
  - Hypertension [Recovered/Resolved]

NARRATIVE: CASE EVENT DATE: 20240326
